FAERS Safety Report 17336442 (Version 3)
Quarter: 2020Q1

REPORT INFORMATION
  Report Type: Spontaneous
  Country: US (occurrence: US)
  Receive Date: 20200128
  Receipt Date: 20200302
  Transmission Date: 20200409
  Serious: No
  Sender: FDA-Public Use
  Company Number: US-JNJFOC-20200130163

PATIENT
  Age: 50 Year
  Sex: Female

DRUGS (1)
  1. STELARA [Suspect]
     Active Substance: USTEKINUMAB
     Indication: PRODUCT USED FOR UNKNOWN INDICATION
     Dosage: NDC: 57894006103
     Route: 058
     Dates: start: 201912

REACTIONS (6)
  - Pollakiuria [Unknown]
  - Pain of skin [Unknown]
  - Toothache [Unknown]
  - Thirst [Unknown]
  - Condition aggravated [Unknown]
  - Gingival pain [Unknown]

NARRATIVE: CASE EVENT DATE: 20200116
